FAERS Safety Report 5418755-6 (Version None)
Quarter: 2007Q3

REPORT INFORMATION
  Report Type: 
  Country: None (occurrence: None)
  Receive Date: 20070817
  Receipt Date: 20070807
  Transmission Date: 20080115
  Serious: Yes (Other)
  Sender: FDA-Public Use
  Company Number: DE-PFIZER INC-2007065426

PATIENT
  Sex: Male

DRUGS (21)
  1. ZYVOX [Suspect]
     Indication: PNEUMONIA
     Route: 042
  2. PANTOPRAZOLE SODIUM [Concomitant]
     Route: 048
  3. COTRIM [Concomitant]
     Route: 042
  4. UNAT [Concomitant]
     Route: 048
  5. SULTANOL [Concomitant]
     Route: 055
  6. ATROVENT [Concomitant]
     Route: 055
  7. ASTONIN-H [Concomitant]
     Route: 048
  8. LEVOTHYROXINE SODIUM [Concomitant]
     Route: 048
  9. NORMOFUNDIN [Concomitant]
     Route: 042
  10. METOCLOPRAMIDE HYDROCHLORIDE [Concomitant]
  11. TORSEMIDE [Concomitant]
  12. TPN [Concomitant]
     Route: 042
  13. FORTUM [Concomitant]
     Route: 042
  14. AQUAPHOR TABLET [Concomitant]
     Route: 048
  15. HEPARIN [Concomitant]
     Route: 058
  16. CORDARONE [Concomitant]
     Route: 048
  17. TROMCARDIN [Concomitant]
     Route: 048
  18. CEFTRIAXONE [Concomitant]
     Route: 042
     Dates: start: 20070122, end: 20070126
  19. INVANZ [Concomitant]
     Route: 042
     Dates: start: 20070126, end: 20070201
  20. AUGMENTIN '125' [Concomitant]
     Route: 042
     Dates: start: 20070127, end: 20070201
  21. VANCOMYCIN [Concomitant]
     Dates: start: 20070131, end: 20070201

REACTIONS (2)
  - ANAEMIA [None]
  - RENAL FUNCTION TEST ABNORMAL [None]
